FAERS Safety Report 25073662 (Version 1)
Quarter: 2025Q1

REPORT INFORMATION
  Report Type: Report from Study
  Country: BR (occurrence: BR)
  Receive Date: 20250313
  Receipt Date: 20250313
  Transmission Date: 20250409
  Serious: Yes (Hospitalization)
  Sender: BIOGEN
  Company Number: BR-BIOGEN-2025BI01303660

PATIENT
  Age: 59 Year
  Sex: Female
  Weight: 70 kg

DRUGS (4)
  1. TYSABRI [Suspect]
     Active Substance: NATALIZUMAB
     Indication: Multiple sclerosis
     Route: 050
     Dates: start: 2021, end: 202407
  2. SIMVASTATIN [Concomitant]
     Active Substance: SIMVASTATIN
     Indication: Blood cholesterol
     Route: 050
  3. LOSARTAN [Concomitant]
     Active Substance: LOSARTAN
     Indication: Hypertension
     Route: 050
  4. ASPIRIN [Concomitant]
     Active Substance: ASPIRIN
     Indication: Varicose vein
     Route: 050

REACTIONS (2)
  - Multiple sclerosis relapse [Not Recovered/Not Resolved]
  - Vitamin B complex deficiency [Unknown]

NARRATIVE: CASE EVENT DATE: 20250101
